FAERS Safety Report 16015149 (Version 2)
Quarter: 2019Q1

REPORT INFORMATION
  Report Type: Spontaneous
  Country: IT (occurrence: IT)
  Receive Date: 20190228
  Receipt Date: 20190311
  Transmission Date: 20190418
  Serious: Yes (Other)
  Sender: FDA-Public Use
  Company Number: IT-LUPIN PHARMACEUTICALS INC.-2019-01026

PATIENT
  Age: 59 Year
  Sex: Female

DRUGS (1)
  1. LOSARTAN AND HYDROCHLOROTHIAZIDE [Suspect]
     Active Substance: HYDROCHLOROTHIAZIDE\LOSARTAN POTASSIUM
     Indication: ESSENTIAL HYPERTENSION
     Dosage: 50 MG-12.5 MG
     Route: 065

REACTIONS (1)
  - Pemphigus [Recovered/Resolved]
